FAERS Safety Report 12356225 (Version 1)
Quarter: 2016Q2

REPORT INFORMATION
  Report Type: Spontaneous
  Country: None (occurrence: US)
  Receive Date: 20160511
  Receipt Date: 20160511
  Transmission Date: 20160815
  Serious: No
  Sender: FDA-Public Use
  Company Number: US-QOL MEDICAL, LLC-1051933

PATIENT
  Age: 81 Year
  Sex: Female
  Weight: 50 kg

DRUGS (4)
  1. ISTALOL [Concomitant]
     Active Substance: TIMOLOL MALEATE
  2. LATANOPROST. [Concomitant]
     Active Substance: LATANOPROST
  3. BACITRACIN. [Concomitant]
     Active Substance: BACITRACIN
  4. SUCRAID [Suspect]
     Active Substance: SACROSIDASE
     Indication: FRUCTOSE INTOLERANCE
     Route: 048
     Dates: start: 20151026

REACTIONS (2)
  - Flatulence [Recovered/Resolved]
  - Frequent bowel movements [Recovered/Resolved]

NARRATIVE: CASE EVENT DATE: 20151116
